FAERS Safety Report 25865978 (Version 1)
Quarter: 2025Q3

REPORT INFORMATION
  Report Type: Spontaneous
  Country: EU (occurrence: EU)
  Receive Date: 20250930
  Receipt Date: 20250930
  Transmission Date: 20251020
  Serious: Yes (Death, Other)
  Sender: AMGEN
  Company Number: EU-AMGEN-ESPSP2025190117

PATIENT
  Age: 43 Year
  Sex: Female

DRUGS (5)
  1. BEVACIZUMAB [Suspect]
     Active Substance: BEVACIZUMAB
     Indication: Glioblastoma
     Route: 065
  2. BEVACIZUMAB [Suspect]
     Active Substance: BEVACIZUMAB
     Dosage: UNK UNK, Q2WK
     Route: 065
  3. TEMOZOLOMIDE [Concomitant]
     Active Substance: TEMOZOLOMIDE
  4. IRINOTECAN [Concomitant]
     Active Substance: IRINOTECAN
  5. ZOLEDRONIC ACID [Concomitant]
     Active Substance: ZOLEDRONIC ACID

REACTIONS (6)
  - Death [Fatal]
  - Glioblastoma [Unknown]
  - Metastases to liver [Unknown]
  - Haematotoxicity [Unknown]
  - Hypersensitivity [Unknown]
  - Arthralgia [Recovered/Resolved]
